FAERS Safety Report 5589497-1 (Version None)
Quarter: 2008Q1

REPORT INFORMATION
  Report Type: 
  Country: None (occurrence: None)
  Receive Date: 20080109
  Receipt Date: 20080107
  Transmission Date: 20080703
  Serious: Yes (Hospitalization, Other)
  Sender: FDA-Public Use
  Company Number: 08012368

PATIENT
  Age: 70 Year
  Sex: Female

DRUGS (11)
  1. PHENYTOIN [Suspect]
     Indication: CONVULSION
     Dosage: 200MG, QD, ORAL
     Route: 048
     Dates: start: 20060529, end: 20060605
  2. PREDNISONE [Suspect]
     Indication: ADRENAL INSUFFICIENCY
     Dosage: 5MG, QD, ORAL
     Route: 048
     Dates: start: 20060529, end: 20060605
  3. FLUTICASONE PROPIONATE [Concomitant]
  4. ASPIRIN [Concomitant]
  5. ATORVASTATIN CALCIUM [Concomitant]
  6. L-DOPA (LEVODOPA) [Concomitant]
  7. CALCIUM CARBONATE (CALCIUM CARBONATE) [Concomitant]
  8. SODIUM DIOCTYL SULFOSUCCINATE (SODIUM DIOCTYL SULFOSUCCINATE) [Concomitant]
  9. HEPARIN [Concomitant]
  10. LEVOTHYROXINE SODIUM [Concomitant]
  11. CABERGOLINE [Concomitant]

REACTIONS (2)
  - ADRENOCORTICAL INSUFFICIENCY ACUTE [None]
  - LOSS OF CONSCIOUSNESS [None]
